FAERS Safety Report 13895129 (Version 1)
Quarter: 2017Q3

REPORT INFORMATION
  Report Type: Report from Study
  Country: None (occurrence: CO)
  Receive Date: 20170823
  Receipt Date: 20170823
  Transmission Date: 20171127
  Serious: Yes (Death, Hospitalization)
  Sender: FDA-Public Use
  Company Number: CO-ABBVIE-17K-036-2080012-00

PATIENT
  Age: 47 Year
  Sex: Male
  Weight: 48 kg

DRUGS (1)
  1. HUMIRA [Suspect]
     Active Substance: ADALIMUMAB
     Indication: CROHN^S DISEASE
     Route: 058
     Dates: start: 20170530, end: 20170804

REACTIONS (6)
  - General physical health deterioration [Fatal]
  - Cardio-respiratory arrest [Fatal]
  - Haemoglobin abnormal [Fatal]
  - Fatigue [Fatal]
  - Asthenia [Fatal]
  - Dyspnoea [Fatal]

NARRATIVE: CASE EVENT DATE: 20170727
